FAERS Safety Report 8901715 (Version 1)
Quarter: 2012Q4

REPORT INFORMATION
  Report Type: Spontaneous
  Country: US (occurrence: None)
  Receive Date: 20121105
  Receipt Date: 20121105
  Transmission Date: 20130627
  Serious: Yes (Hospitalization)
  Sender: FDA-Public Use
  Company Number: ACO_32671_2012

PATIENT
  Age: 60 Year
  Sex: Male
  Weight: 81.6 kg

DRUGS (11)
  1. AMPYRA (DALFAMPRIDINE) TABLET, 10MG [Suspect]
     Indication: GAIT DISTURBANCE
     Route: 048
     Dates: start: 20110224
  2. ALBUTEROL (SALBUTAMOL SULFATE) [Concomitant]
  3. BABY ASPIRIN (ACETYSALICYLIC ACID) [Concomitant]
  4. BACLOFEN (BACLOFEN) [Concomitant]
  5. CALCIUM + VITAMIN D (CALCIUM CARBONATE, COLECALCIFEROL) [Concomitant]
  6. CELLCEPT (MYCOPHENOLATE MOFETIL) TABLET [Concomitant]
  7. CRESTOR (ROSUVASTATIN CALCIUM) [Concomitant]
  8. LISINOPRIL (LISINOPRIL) [Concomitant]
  9. MULTIVITAMIN (VITAMINS NOS) [Concomitant]
  10. PROVIGIL (MODAFINIL) [Concomitant]
  11. SOLU-MEDROL (METHYLPREDNISOLONE SODIUM SUCCINATE) [Concomitant]

REACTIONS (1)
  - Pneumonia [None]
